FAERS Safety Report 5534176-X (Version None)
Quarter: 2007Q4

REPORT INFORMATION
  Report Type: 
  Country: None (occurrence: None)
  Receive Date: 20071205
  Receipt Date: 20071126
  Transmission Date: 20080405
  Serious: Yes (Disabling, Other)
  Sender: FDA-Public Use
  Company Number: US-SP-2006-02768

PATIENT
  Age: 16 Year
  Sex: Female

DRUGS (5)
  1. IMOVAX RABIES I.D. [Suspect]
     Indication: ACCIDENTAL EXPOSURE
     Route: 030
     Dates: start: 20060820, end: 20060917
  2. IMOVAX RABIES I.D. [Suspect]
     Route: 030
     Dates: start: 20060820, end: 20060917
  3. IMMUNOGLOBULIN HUMAN ANTIRABIES [Suspect]
     Indication: ACCIDENTAL EXPOSURE
     Route: 065
     Dates: start: 20060820
  4. NEXIUM OD [Concomitant]
  5. CORTISONE ACETATE TAB [Concomitant]

REACTIONS (18)
  - ARTHRALGIA [None]
  - BURSITIS [None]
  - GAIT DISTURBANCE [None]
  - GASTROOESOPHAGEAL REFLUX DISEASE [None]
  - HEADACHE [None]
  - HYPOKINESIA [None]
  - INJECTION SITE ERYTHEMA [None]
  - INJECTION SITE INFLAMMATION [None]
  - INJECTION SITE PAIN [None]
  - INJECTION SITE SWELLING [None]
  - INJECTION SITE WARMTH [None]
  - INSOMNIA [None]
  - MYALGIA [None]
  - NAUSEA [None]
  - POLYARTHRITIS [None]
  - PYREXIA [None]
  - VOMITING [None]
  - WEIGHT DECREASED [None]
